FAERS Safety Report 7989637-0 (Version None)
Quarter: 2011Q4

REPORT INFORMATION
  Report Type: 
  Country: None (occurrence: None)
  Receive Date: 20111215
  Receipt Date: 20111130
  Transmission Date: 20120403
  Serious: Yes (Other)
  Sender: FDA-Public Use
  Company Number: 11/11/30JM

PATIENT
  Age: 5 Year
  Sex: Male
  Weight: 15.7852 kg

DRUGS (3)
  1. ALAHIST DHC [Concomitant]
  2. CEDAX [Suspect]
     Indication: PHARYNGITIS STREPTOCOCCAL
     Dosage: 0RAL 3-4 TSP
     Dates: start: 20111012, end: 20111022
  3. VENTOLIN [Concomitant]

REACTIONS (3)
  - HAEMATOCHEZIA [None]
  - MUCOUS STOOLS [None]
  - CLOSTRIDIAL INFECTION [None]
